FAERS Safety Report 9685532 (Version 1)
Quarter: 2013Q4

REPORT INFORMATION
  Report Type: Spontaneous
  Country: JP (occurrence: JP)
  Receive Date: 20131113
  Receipt Date: 20131113
  Transmission Date: 20140711
  Serious: Yes (Life-Threatening, Disabling, Other)
  Sender: FDA-Public Use
  Company Number: JP-ROCHE-1298406

PATIENT
  Age: 80 Year
  Sex: Female
  Weight: 45 kg

DRUGS (9)
  1. ACTEMRA [Suspect]
     Indication: RHEUMATOID ARTHRITIS
     Dosage: LAST DOSE PRIOR TO EVENT:27/AUG/2013
     Route: 058
     Dates: start: 20130702
  2. RHEUMATREX [Concomitant]
     Dosage: DOSAGE IS UNCERTAIN.
     Route: 065
  3. FOLIAMIN [Concomitant]
     Dosage: DOSAGE IS UNCERTAIN.
     Route: 065
  4. BENET [Concomitant]
     Dosage: DOSAGE IS UNCERTAIN.
     Route: 065
  5. ALLEGRA [Concomitant]
     Dosage: DOSAGE IS UNCERTAIN.
     Route: 065
  6. BRUFEN [Concomitant]
     Dosage: DOSAGE IS UNCERTAIN.
     Route: 065
  7. TAKEPRON [Concomitant]
     Dosage: DOSAGE IS UNCERTAIN.
     Route: 065
  8. CELECOX [Concomitant]
     Dosage: DOSAGE IS UNCERTAIN.
     Route: 065
  9. CALONAL [Concomitant]
     Dosage: DOSAGE IS UNCERTAIN.
     Route: 065

REACTIONS (2)
  - Pneumocystis jirovecii pneumonia [Recovered/Resolved with Sequelae]
  - Interstitial lung disease [Unknown]
